FAERS Safety Report 10778030 (Version 3)
Quarter: 2015Q1

REPORT INFORMATION
  Report Type: Spontaneous
  Country: US (occurrence: US)
  Receive Date: 20150209
  Receipt Date: 20150326
  Transmission Date: 20150721
  Serious: No
  Sender: FDA-Public Use
  Company Number: US-PFIZER INC-2015052069

PATIENT
  Age: 62 Year
  Sex: Female
  Weight: 63 kg

DRUGS (4)
  1. LEVOTHYROXINE [Concomitant]
     Active Substance: LEVOTHYROXINE
     Dosage: UNK
     Dates: start: 2000
  2. LYRICA [Suspect]
     Active Substance: PREGABALIN
     Indication: TRIGEMINAL NEURALGIA
     Dosage: 25 MG, 3X/DAY
     Route: 048
     Dates: end: 20150209
  3. LYRICA [Suspect]
     Active Substance: PREGABALIN
     Indication: NERVOUS SYSTEM DISORDER
  4. PREVACID [Concomitant]
     Active Substance: LANSOPRAZOLE
     Dosage: UNK
     Dates: start: 1987

REACTIONS (7)
  - Product use issue [Unknown]
  - Therapeutic response unexpected [Unknown]
  - Pre-existing condition improved [Unknown]
  - Dizziness [Recovering/Resolving]
  - Mood swings [Not Recovered/Not Resolved]
  - Anger [Recovered/Resolved]
  - Vision blurred [Recovered/Resolved]

NARRATIVE: CASE EVENT DATE: 2011
